FAERS Safety Report 6528039-0 (Version None)
Quarter: 2009Q4

REPORT INFORMATION
  Report Type: 
  Country: None (occurrence: None)
  Receive Date: 20091222
  Receipt Date: 20090915
  Transmission Date: 20100525
  Serious: No
  Sender: FDA-Public Use
  Company Number: ALL1-2009-02723

PATIENT
  Age: 21 Year
  Sex: Male
  Weight: 99.8 kg

DRUGS (2)
  1. VYVANSE [Suspect]
     Indication: ATTENTION DEFICIT/HYPERACTIVITY DISORDER
     Dosage: 20 MG, 1X/DAY:QD, ORAL ; 40 MG, 1X/DAY:QD, ORAL
     Route: 048
     Dates: start: 20080901, end: 20081101
  2. VYVANSE [Suspect]
     Indication: ATTENTION DEFICIT/HYPERACTIVITY DISORDER
     Dosage: 20 MG, 1X/DAY:QD, ORAL ; 40 MG, 1X/DAY:QD, ORAL
     Route: 048
     Dates: start: 20081101, end: 20090907

REACTIONS (5)
  - AFFECT LABILITY [None]
  - ANGER [None]
  - IMPAIRED WORK ABILITY [None]
  - INCORRECT STORAGE OF DRUG [None]
  - WITHDRAWAL SYNDROME [None]
